FAERS Safety Report 8449070-4 (Version None)
Quarter: 2012Q2

REPORT INFORMATION
  Report Type: 
  Country: None (occurrence: None)
  Receive Date: 20120619
  Receipt Date: 20120525
  Transmission Date: 20120825
  Serious: No
  Sender: FDA-Public Use
  Company Number: US-BAYER-2012-053493

PATIENT
  Sex: Female

DRUGS (3)
  1. ALEVE (CAPLET) [Suspect]
     Dosage: 2 DF, UNK
     Route: 048
  2. SODIUM BICARBONATE [Suspect]
     Dosage: UNK
     Route: 048
  3. IBUPROFEN [Concomitant]

REACTIONS (1)
  - EUPHORIC MOOD [None]
